FAERS Safety Report 6915240-7 (Version None)
Quarter: 2010Q3

REPORT INFORMATION
  Report Type: 
  Country: None (occurrence: None)
  Receive Date: 20100806
  Receipt Date: 20100806
  Transmission Date: 20110219
  Serious: Yes (Life-Threatening, Hospitalization)
  Sender: FDA-Public Use
  Company Number: None

PATIENT
  Sex: Female
  Weight: 68.0396 kg

DRUGS (2)
  1. PROZAC [Suspect]
     Indication: ANXIETY DISORDER
     Dosage: 1 PER DAY PO
     Route: 048
     Dates: start: 20100420, end: 20100503
  2. PROZAC [Suspect]
     Indication: DEPRESSION
     Dosage: 1 PER DAY PO
     Route: 048
     Dates: start: 20100420, end: 20100503

REACTIONS (14)
  - AGITATION [None]
  - AMNESIA [None]
  - ANXIETY [None]
  - CONFUSIONAL STATE [None]
  - DYSPNOEA [None]
  - FALL [None]
  - HALLUCINATION [None]
  - HEADACHE [None]
  - HEART RATE INCREASED [None]
  - HYPERHIDROSIS [None]
  - INSOMNIA [None]
  - PANIC REACTION [None]
  - PSYCHOTIC DISORDER [None]
  - SEROTONIN SYNDROME [None]
